FAERS Safety Report 5468264-3 (Version None)
Quarter: 2007Q3

REPORT INFORMATION
  Report Type: 
  Country: None (occurrence: None)
  Receive Date: 20070921
  Receipt Date: 20070905
  Transmission Date: 20080115
  Serious: Yes (Life-Threatening, Hospitalization)
  Sender: FDA-Public Use
  Company Number: S07-FRA-05055-01

PATIENT
  Age: 78 Year
  Sex: Female

DRUGS (2)
  1. ESCITALOPRAM [Suspect]
     Dosage: 20 MG QD PO
     Route: 048
     Dates: start: 20070501, end: 20070901
  2. UNSPECIFIED  MEDICATIONS [Concomitant]

REACTIONS (4)
  - CIRCULATORY COLLAPSE [None]
  - CYTOLYTIC HEPATITIS [None]
  - DEHYDRATION [None]
  - HEPATITIS CHOLESTATIC [None]
